FAERS Safety Report 4467362-0 (Version None)
Quarter: 2004Q4

REPORT INFORMATION
  Report Type: 
  Country: None (occurrence: None)
  Receive Date: 20041006
  Receipt Date: 20040930
  Transmission Date: 20050328
  Serious: Yes (Death, Other)
  Sender: FDA-Public Use
  Company Number: PHBS2004DE13036

PATIENT
  Age: 36 Year
  Sex: Male

DRUGS (2)
  1. CYCLOSPORINE [Suspect]
     Indication: HEART TRANSPLANT
     Dates: start: 20000701
  2. CORTISONE [Suspect]
     Indication: HEART TRANSPLANT

REACTIONS (15)
  - CYTOMEGALOVIRUS INFECTION [None]
  - DYSPNOEA [None]
  - HEART TRANSPLANT REJECTION [None]
  - LEUKOCYTOSIS [None]
  - LYMPHOCYTE COUNT DECREASED [None]
  - MUSCULAR WEAKNESS [None]
  - MYOCARDITIS [None]
  - NEUTROPHIL COUNT DECREASED [None]
  - OEDEMA [None]
  - PANCYTOPENIA [None]
  - PLATELET COUNT DECREASED [None]
  - RED BLOOD CELL COUNT DECREASED [None]
  - SERUM FERRITIN INCREASED [None]
  - WEIGHT DECREASED [None]
  - WHITE BLOOD CELL COUNT DECREASED [None]
